FAERS Safety Report 7053745-1 (Version None)
Quarter: 2010Q4

REPORT INFORMATION
  Report Type: 
  Country: None (occurrence: None)
  Receive Date: 20101020
  Receipt Date: 20101014
  Transmission Date: 20110411
  Serious: Yes (Other)
  Sender: FDA-Public Use
  Company Number: A0886725A

PATIENT
  Age: 61 Year
  Sex: Male

DRUGS (4)
  1. LOVAZA [Suspect]
     Dosage: 2CAP TWICE PER DAY
     Route: 048
     Dates: start: 20100622
  2. TRICOR [Concomitant]
  3. NIASPAN [Concomitant]
  4. ALTOPREV [Concomitant]

REACTIONS (7)
  - ABDOMINAL DISCOMFORT [None]
  - BACK PAIN [None]
  - ERUCTATION [None]
  - EYE DISORDER [None]
  - HEPATIC ENZYME INCREASED [None]
  - LOCAL SWELLING [None]
  - MALAISE [None]
